FAERS Safety Report 4613539-0 (Version None)
Quarter: 2005Q1

REPORT INFORMATION
  Report Type: 
  Country: None (occurrence: None)
  Receive Date: 20050318
  Receipt Date: 20050318
  Transmission Date: 20050727
  Serious: Yes (Life-Threatening, Hospitalization)
  Sender: FDA-Public Use
  Company Number: None

PATIENT
  Age: 52 Year
  Sex: Male
  Weight: 78 kg

DRUGS (14)
  1. CISPLATIN [Suspect]
     Indication: NEOPLASM MALIGNANT
     Dosage: 100 MG/M2 1 DOSE
     Dates: start: 20041109
  2. ASPIRIN [Concomitant]
  3. DEXAMETHASONE [Concomitant]
  4. GEMFIBROZIL [Concomitant]
  5. INSULIN NPH + REG [Concomitant]
  6. LOSARTAN POTASSIUM [Concomitant]
  7. METFORMIN [Concomitant]
  8. METOPROLOL TARTRATE [Concomitant]
  9. MORPHINE SULFATE [Concomitant]
  10. ONDANSETRON [Concomitant]
  11. PERCOCET [Concomitant]
  12. PROCHLORPERAZINE [Concomitant]
  13. SILDENAFIL CITRATE [Concomitant]
  14. SIMVASTATIN [Concomitant]

REACTIONS (3)
  - ELECTROCARDIOGRAM T WAVE PEAKED [None]
  - HYPERKALAEMIA [None]
  - RENAL FAILURE ACUTE [None]
